FAERS Safety Report 6467046-3 (Version None)
Quarter: 2009Q4

REPORT INFORMATION
  Report Type: 
  Country: None (occurrence: None)
  Receive Date: 20091202
  Receipt Date: 20091119
  Transmission Date: 20100525
  Serious: Yes (Other)
  Sender: FDA-Public Use
  Company Number: IT-PFIZER INC-2009301983

PATIENT

DRUGS (1)
  1. SERTRALINE HCL [Suspect]
     Route: 063

REACTIONS (4)
  - EAR DISORDER [None]
  - GROWTH RETARDATION [None]
  - HYPOTONIA [None]
  - SOMNOLENCE [None]
